FAERS Safety Report 7929100-6 (Version None)
Quarter: 2011Q4

REPORT INFORMATION
  Report Type: 
  Country: None (occurrence: None)
  Receive Date: 20111119
  Receipt Date: 20111109
  Transmission Date: 20120403
  Serious: Yes (Hospitalization)
  Sender: FDA-Public Use
  Company Number: FR-ASTRAZENECA-2011SE68125

PATIENT
  Age: 918 Month
  Sex: Female

DRUGS (10)
  1. OMEPRAZOLE [Suspect]
     Route: 048
     Dates: start: 20101202, end: 20101206
  2. CARTREX [Suspect]
     Route: 048
     Dates: start: 20101202, end: 20101206
  3. TANAKAN [Suspect]
     Route: 048
     Dates: start: 20090601, end: 20101206
  4. CALCIUM CARBONATE [Suspect]
     Route: 048
     Dates: start: 20090601, end: 20101206
  5. ACETAMINOPHEN AND TRAMADOL HCL [Suspect]
     Route: 048
     Dates: start: 20101202, end: 20101206
  6. ACETAMINOPHEN AND TRAMADOL HCL [Suspect]
     Route: 048
     Dates: start: 20100701, end: 20100701
  7. LYRICA [Suspect]
     Route: 048
     Dates: start: 20090601, end: 20101206
  8. CHONDROSULF [Suspect]
     Route: 048
     Dates: start: 20090601, end: 20101206
  9. ALENDRONATE SODIUM [Suspect]
     Route: 048
     Dates: start: 20090601, end: 20101206
  10. CIRCADIN LP [Suspect]
     Route: 048
     Dates: start: 20090601, end: 20101206

REACTIONS (2)
  - DEPRESSED LEVEL OF CONSCIOUSNESS [None]
  - FALL [None]
